FAERS Safety Report 17136152 (Version 5)
Quarter: 2020Q1

REPORT INFORMATION
  Report Type: Report from Study
  Country: None (occurrence: US)
  Receive Date: 20191210
  Receipt Date: 20200203
  Transmission Date: 20200409
  Serious: Yes (Death, Life-Threatening, Hospitalization, Other)
  Sender: FDA-Public Use
  Company Number: US-ABBVIE-19P-163-3181373-00

PATIENT
  Age: 28 Year
  Sex: Male
  Weight: 69.2 kg

DRUGS (18)
  1. VENETOCLAX. [Suspect]
     Active Substance: VENETOCLAX
     Route: 048
     Dates: start: 20191115, end: 20191127
  2. NORMAL SALINE [Concomitant]
     Active Substance: SODIUM CHLORIDE
     Route: 042
     Dates: start: 20191114, end: 20191114
  3. NORMAL SALINE [Concomitant]
     Active Substance: SODIUM CHLORIDE
     Indication: PROPHYLAXIS
     Route: 042
     Dates: start: 20191121, end: 20191121
  4. PANTOPRAZOLE [Concomitant]
     Active Substance: PANTOPRAZOLE
     Dates: start: 20190520, end: 20190927
  5. RIFAXIMIN. [Concomitant]
     Active Substance: RIFAXIMIN
     Indication: HYPERBILIRUBINAEMIA
     Dates: start: 20190520, end: 20190927
  6. VENETOCLAX. [Suspect]
     Active Substance: VENETOCLAX
     Indication: ACUTE LYMPHOCYTIC LEUKAEMIA
     Route: 048
     Dates: start: 20191114, end: 20191114
  7. DEXAMETHASONE. [Suspect]
     Active Substance: DEXAMETHASONE
     Indication: ACUTE LYMPHOCYTIC LEUKAEMIA
     Route: 048
     Dates: start: 20191114, end: 20191118
  8. PEGASPARAGINASE [Suspect]
     Active Substance: PEGASPARGASE
     Indication: ACUTE LYMPHOCYTIC LEUKAEMIA
     Dosage: 1250 IU/M2
     Route: 042
     Dates: start: 20191114, end: 20191114
  9. ABT-263 [Suspect]
     Active Substance: NAVITOCLAX
     Indication: ACUTE LYMPHOCYTIC LEUKAEMIA
     Route: 048
     Dates: start: 20191116, end: 20191127
  10. PANTOPRAZOLE [Concomitant]
     Active Substance: PANTOPRAZOLE
     Indication: ABDOMINAL PAIN
     Route: 048
     Dates: start: 20191121
  11. VINCRISTINE [Suspect]
     Active Substance: VINCRISTINE
     Indication: ACUTE LYMPHOCYTIC LEUKAEMIA
     Route: 042
     Dates: start: 20191114, end: 20191121
  12. NORMAL SALINE [Concomitant]
     Active Substance: SODIUM CHLORIDE
     Route: 042
     Dates: start: 20191125, end: 20191125
  13. ALLOPURINOL. [Concomitant]
     Active Substance: ALLOPURINOL
     Route: 048
     Dates: start: 20191113, end: 20191117
  14. LACTULOSE. [Concomitant]
     Active Substance: LACTULOSE
     Indication: HYPERBILIRUBINAEMIA
     Dates: start: 20190520, end: 20190927
  15. RIFAXIMIN. [Concomitant]
     Active Substance: RIFAXIMIN
     Indication: ALANINE AMINOTRANSFERASE INCREASED
     Route: 048
     Dates: start: 20191127
  16. ALLOPURINOL. [Concomitant]
     Active Substance: ALLOPURINOL
     Indication: TUMOUR LYSIS SYNDROME
     Route: 048
     Dates: start: 20191112, end: 20191112
  17. ALLOPURINOL. [Concomitant]
     Active Substance: ALLOPURINOL
     Route: 048
     Dates: start: 20191118, end: 20191118
  18. LACTULOSE. [Concomitant]
     Active Substance: LACTULOSE
     Indication: ALANINE AMINOTRANSFERASE INCREASED
     Route: 048
     Dates: start: 20191127

REACTIONS (9)
  - Rectal perforation [Recovered/Resolved]
  - Dehydration [Recovered/Resolved]
  - Respiratory failure [Unknown]
  - Septic shock [Unknown]
  - Multiple organ dysfunction syndrome [Recovered/Resolved]
  - Multiple organ dysfunction syndrome [Fatal]
  - Pneumonia [Fatal]
  - Acute kidney injury [Unknown]
  - Pneumonia [Recovered/Resolved]

NARRATIVE: CASE EVENT DATE: 20191201
